FAERS Safety Report 9237156 (Version 1)
Quarter: 2013Q2

REPORT INFORMATION
  Report Type: Spontaneous
  Country: US (occurrence: US)
  Receive Date: 20130417
  Receipt Date: 20130417
  Transmission Date: 20140414
  Serious: No
  Sender: FDA-Public Use
  Company Number: US-BANPHARM-20130836

PATIENT
  Age: 74 Year
  Sex: Male
  Weight: 105.69 kg

DRUGS (8)
  1. ALEVE LIQUID GELS 220MG [Suspect]
     Indication: BACK PAIN
     Dosage: 2 DF, BID,
     Route: 048
     Dates: start: 20130201, end: 20130211
  2. FUROSEMIDE [Concomitant]
  3. METFORMIN [Concomitant]
  4. FISH OIL [Concomitant]
     Indication: VITAMIN SUPPLEMENTATION
  5. FLAX OIL [Concomitant]
     Indication: VITAMIN SUPPLEMENTATION
  6. VITAMIN D [Concomitant]
     Indication: VITAMIN SUPPLEMENTATION
  7. TERAZOSIN [Concomitant]
  8. ALEVE ARTHRITIS LIQUID GELS [Suspect]

REACTIONS (3)
  - Drug ineffective [Recovered/Resolved]
  - Incorrect dose administered [Recovered/Resolved]
  - Incorrect drug administration duration [Recovered/Resolved]
